FAERS Safety Report 5874031-9 (Version None)
Quarter: 2008Q3

REPORT INFORMATION
  Report Type: 
  Country: None (occurrence: None)
  Receive Date: 20080829
  Receipt Date: 20080820
  Transmission Date: 20090109
  Serious: Yes (Hospitalization, Other)
  Sender: FDA-Public Use
  Company Number: 2008SP017056

PATIENT
  Age: 50 Year
  Sex: Male

DRUGS (2)
  1. PEGINTRON (PEGINTERFERON ALFA-2B) (PETINTERFERON ALFA-2B) [Suspect]
     Indication: HEPATITIS C
     Dates: start: 20070101
  2. REBETOL [Suspect]
     Indication: HEPATITIS C
     Dates: start: 20070101

REACTIONS (2)
  - CHOLECYSTITIS ACUTE [None]
  - SEPTIC ARTHRITIS STAPHYLOCOCCAL [None]
